FAERS Safety Report 8108161-8 (Version None)
Quarter: 2012Q1

REPORT INFORMATION
  Report Type: 
  Country: None (occurrence: None)
  Receive Date: 20120202
  Receipt Date: 20120127
  Transmission Date: 20120608
  Serious: Yes (Hospitalization)
  Sender: FDA-Public Use
  Company Number: US-JNJFOC-20120113427

PATIENT
  Sex: Female

DRUGS (1)
  1. XARELTO [Suspect]
     Indication: ATRIAL FIBRILLATION
     Route: 048
     Dates: end: 20120122

REACTIONS (3)
  - GASTROINTESTINAL HAEMORRHAGE [None]
  - CEREBROVASCULAR ACCIDENT [None]
  - COLONIC POLYP [None]
